FAERS Safety Report 19815462 (Version 1)
Quarter: 2021Q3

REPORT INFORMATION
  Report Type: Spontaneous
  Country: US (occurrence: US)
  Receive Date: 20210908
  Receipt Date: 20210908
  Transmission Date: 20211014
  Serious: No
  Sender: FDA-Public Use
  Company Number: None

PATIENT
  Age: 64 Year
  Sex: Female

DRUGS (1)
  1. OTEZLA [Suspect]
     Active Substance: APREMILAST
     Indication: PSORIATIC ARTHROPATHY
     Dosage: OTHER DOSE:1 TABLET; EVERY 12 HOURS ORAL?
     Route: 048
     Dates: start: 20210826

REACTIONS (2)
  - Eye pain [None]
  - Migraine [None]

NARRATIVE: CASE EVENT DATE: 202108
